FAERS Safety Report 9999289 (Version 1)
Quarter: 2014Q1

REPORT INFORMATION
  Report Type: Spontaneous
  Country: US (occurrence: None)
  Receive Date: 20140311
  Receipt Date: 20140311
  Transmission Date: 20141002
  Serious: Yes (Hospitalization, Disabling, Other)
  Sender: FDA-Public Use
  Company Number: None

PATIENT
  Age: 35 Year
  Sex: Female
  Weight: 65.77 kg

DRUGS (1)
  1. NUVARING [Suspect]
     Indication: CONTRACEPTION
     Dosage: BIRTH CONTROL ?3 WKS IN/1 WK OUT?VAGINAL ?2-3 YEARS
     Route: 067

REACTIONS (7)
  - Thrombotic stroke [None]
  - Headache [None]
  - Hemiplegia [None]
  - Optic nerve injury [None]
  - Fatigue [None]
  - Vertigo [None]
  - Incontinence [None]
